FAERS Safety Report 12436263 (Version 1)
Quarter: 2016Q2

REPORT INFORMATION
  Report Type: Spontaneous
  Country: IT (occurrence: IT)
  Receive Date: 20160605
  Receipt Date: 20160605
  Transmission Date: 20160815
  Serious: Yes (Hospitalization)
  Sender: FDA-Public Use
  Company Number: PHHY2016IT074329

PATIENT
  Age: 38 Year
  Sex: Female

DRUGS (5)
  1. SYCREST [Suspect]
     Active Substance: ASENAPINE MALEATE
     Indication: INTENTIONAL SELF-INJURY
     Dosage: 25 MG, ONCE/SINGLE
     Route: 048
     Dates: start: 20160414, end: 20160414
  2. SERTRALINE [Suspect]
     Active Substance: SERTRALINE HYDROCHLORIDE
     Indication: INTENTIONAL SELF-INJURY
     Dosage: 600 MG, ONCE/SINGLE
     Route: 048
     Dates: start: 20160414, end: 20160414
  3. GABAPENTIN. [Suspect]
     Active Substance: GABAPENTIN
     Indication: INTENTIONAL SELF-INJURY
     Dosage: 4000 MG, ONCE/SINGLE
     Route: 048
     Dates: start: 20160414, end: 20160414
  4. LARGACTIL [Suspect]
     Active Substance: CHLORPROMAZINE
     Indication: INTENTIONAL SELF-INJURY
     Dosage: 300 MG, ONCE/SINGLE
     Route: 048
     Dates: start: 20160414, end: 20160414
  5. TRITTICO [Suspect]
     Active Substance: TRAZODONE HYDROCHLORIDE
     Indication: INTENTIONAL SELF-INJURY
     Dosage: 225 MG, ONCE/SINGLE
     Route: 048
     Dates: start: 20160414, end: 20160414

REACTIONS (1)
  - Drug abuse [Unknown]

NARRATIVE: CASE EVENT DATE: 20160414
